FAERS Safety Report 19907168 (Version 1)
Quarter: 2021Q4

REPORT INFORMATION
  Report Type: Report from Study
  Country: None (occurrence: US)
  Receive Date: 20211001
  Receipt Date: 20211001
  Transmission Date: 20220303
  Serious: Yes (Hospitalization)
  Sender: FDA-Public Use
  Company Number: US-ABBVIE-21K-163-4099340-00

PATIENT
  Sex: Female

DRUGS (6)
  1. CREON [Suspect]
     Active Substance: PANCRELIPASE AMYLASE\PANCRELIPASE LIPASE\PANCRELIPASE PROTEASE
     Indication: Pancreatic enzymes decreased
     Dosage: 2 CAPS WITH MEALS, 1 CAP WITH SNACK
     Route: 048
     Dates: start: 202101
  2. CREON [Suspect]
     Active Substance: PANCRELIPASE AMYLASE\PANCRELIPASE LIPASE\PANCRELIPASE PROTEASE
     Indication: Pancreatic carcinoma
  3. Metoprolol (NON-ABBVIE) [Concomitant]
     Indication: Hypertension
  4. Estrogen (NON-ABBVIE) [Concomitant]
     Indication: Hormone replacement therapy
  5. Famotidine (NON-ABBVIE) [Concomitant]
     Indication: Hiatus hernia
  6. Famotidine (NON-ABBVIE) [Concomitant]
     Indication: Antacid therapy

REACTIONS (3)
  - Back injury [Recovered/Resolved]
  - Back pain [Recovered/Resolved]
  - Fatigue [Not Recovered/Not Resolved]

NARRATIVE: CASE EVENT DATE: 20210101
